FAERS Safety Report 25254562 (Version 1)
Quarter: 2025Q2

REPORT INFORMATION
  Report Type: Spontaneous
  Country: DE (occurrence: DE)
  Receive Date: 20250430
  Receipt Date: 20250430
  Transmission Date: 20250717
  Serious: Yes (Other)
  Sender: AUROBINDO
  Company Number: DE-GSKCCFEMEA-Case-02299543_AE-96403

PATIENT
  Age: 14 Year
  Sex: Female

DRUGS (3)
  1. ACYCLOVIR [Suspect]
     Active Substance: ACYCLOVIR
     Indication: Nasal herpes
     Route: 065
  2. PYRIDOSTIGMINE [Concomitant]
     Active Substance: PYRIDOSTIGMINE
     Indication: Product used for unknown indication
     Route: 065
  3. ZOVIRAX [Suspect]
     Active Substance: ACYCLOVIR
     Indication: Nasal herpes
     Route: 065

REACTIONS (3)
  - Facial paralysis [Unknown]
  - Myasthenia gravis [Unknown]
  - Drug ineffective [Unknown]
